FAERS Safety Report 5817427-3 (Version None)
Quarter: 2008Q3

REPORT INFORMATION
  Report Type: 
  Country: None (occurrence: None)
  Receive Date: 20080722
  Receipt Date: 20080715
  Transmission Date: 20090109
  Serious: Yes (Hospitalization)
  Sender: FDA-Public Use
  Company Number: FR-ELI_LILLY_AND_COMPANY-FR200807002870

PATIENT
  Sex: Male

DRUGS (14)
  1. ZYPREXA [Suspect]
     Indication: BIPOLAR DISORDER
     Dosage: 10 MG, DAILY (1/D)
     Route: 048
  2. EPITOMAX [Concomitant]
     Dosage: 50 MG, DAILY (1/D)
     Route: 048
  3. LAMICTAL [Concomitant]
     Dosage: 600 MG, DAILY (1/D)
     Route: 048
  4. TERCIAN [Concomitant]
     Dosage: 75 MG, DAILY (1/D)
     Route: 048
     Dates: end: 20080201
  5. NOCTRAN 10 [Concomitant]
     Dosage: 10 MG, DAILY (1/D)
     Route: 048
     Dates: end: 20080201
  6. CLONAZEPAM [Concomitant]
     Dosage: 4 MG, DAILY (1/D)
     Route: 048
     Dates: end: 20080201
  7. LASIX [Concomitant]
     Dates: start: 20080217
  8. RISORDAN [Concomitant]
     Dates: start: 20080217
  9. FLUMAZENIL [Concomitant]
  10. AUGMENTIN '125' [Concomitant]
  11. OFLOCET [Concomitant]
  12. HEPARIN [Concomitant]
     Dosage: UNK, UNK
     Route: 042
     Dates: start: 20080101
  13. TAZOCILLINE [Concomitant]
  14. CIFLOX [Concomitant]

REACTIONS (9)
  - ACUTE RESPIRATORY DISTRESS SYNDROME [None]
  - AGITATION [None]
  - ASPIRATION BRONCHIAL [None]
  - OEDEMA [None]
  - PNEUMOTHORAX [None]
  - PULMONARY EMBOLISM [None]
  - RESPIRATORY ACIDOSIS [None]
  - RESPIRATORY FAILURE [None]
  - SOMNOLENCE [None]
